FAERS Safety Report 15093294 (Version 1)
Quarter: 2018Q2

REPORT INFORMATION
  Report Type: Spontaneous
  Country: US (occurrence: US)
  Receive Date: 20180629
  Receipt Date: 20180629
  Transmission Date: 20180711
  Serious: No
  Sender: FDA-Public Use
  Company Number: US-MORTON GROVE PHARMACEUTICALS, INC.-2051124

PATIENT
  Age: 60 Year
  Sex: Female
  Weight: 59.09 kg

DRUGS (1)
  1. GENERLAC [Suspect]
     Active Substance: LACTULOSE
     Indication: CONSTIPATION
     Route: 048

REACTIONS (1)
  - Drug ineffective [Recovered/Resolved]
